FAERS Safety Report 12641431 (Version 3)
Quarter: 2016Q3

REPORT INFORMATION
  Report Type: Report from Study
  Country: FR (occurrence: FR)
  Receive Date: 20160810
  Receipt Date: 20160921
  Transmission Date: 20161109
  Serious: Yes (Death, Life-Threatening, Hospitalization)
  Sender: FDA-Public Use
  Company Number: FR-AMGEN-FRACT2016094801

PATIENT
  Age: 61 Year
  Sex: Male

DRUGS (2)
  1. CARFILZOMIB [Suspect]
     Active Substance: CARFILZOMIB
     Indication: PLASMA CELL MYELOMA
     Dosage: 54 MG, PER CHEMO REGIM
     Route: 042
     Dates: start: 20160413, end: 20160526
  2. DEXAMETHASONE. [Suspect]
     Active Substance: DEXAMETHASONE
     Indication: PLASMA CELL MYELOMA
     Dosage: 40 MG, PER CHEMO REGIM
     Route: 048
     Dates: start: 20160413, end: 20160601

REACTIONS (1)
  - Acute kidney injury [Fatal]

NARRATIVE: CASE EVENT DATE: 20160622
